FAERS Safety Report 19589340 (Version 2)
Quarter: 2021Q3

REPORT INFORMATION
  Report Type: Report from Study
  Country: US (occurrence: US)
  Receive Date: 20210721
  Receipt Date: 20210904
  Transmission Date: 20211014
  Serious: Yes (Hospitalization)
  Sender: FDA-Public Use
  Company Number: US-ROCHE-2868492

PATIENT
  Age: 61 Year
  Sex: Male
  Weight: 85.81 kg

DRUGS (13)
  1. ALBUTEROL. [Concomitant]
     Active Substance: ALBUTEROL
     Dosage: AS REQUIRED
  2. SPIRIVA [Concomitant]
     Active Substance: TIOTROPIUM BROMIDE MONOHYDRATE
  3. VALSARTAN. [Concomitant]
     Active Substance: VALSARTAN
  4. TAMSULOSIN [Concomitant]
     Active Substance: TAMSULOSIN
  5. ASA [Concomitant]
     Active Substance: ASPIRIN
  6. PREVACID [Concomitant]
     Active Substance: LANSOPRAZOLE
  7. PIRFENIDONE. [Suspect]
     Active Substance: PIRFENIDONE
     Indication: PNEUMOCONIOSIS
     Route: 048
     Dates: start: 20201013
  8. SYNTHROID [Concomitant]
     Active Substance: LEVOTHYROXINE SODIUM
  9. PROVENTIL [Concomitant]
     Active Substance: ALBUTEROL
  10. PRAVASTATIN. [Concomitant]
     Active Substance: PRAVASTATIN
  11. METFORMIN [Concomitant]
     Active Substance: METFORMIN HYDROCHLORIDE
  12. COMBIVENT [Concomitant]
     Active Substance: ALBUTEROL SULFATE\IPRATROPIUM BROMIDE
  13. CARVEDILOL. [Concomitant]
     Active Substance: CARVEDILOL

REACTIONS (1)
  - Lung disorder [Recovered/Resolved]

NARRATIVE: CASE EVENT DATE: 20210704
